FAERS Safety Report 5975751-8 (Version None)
Quarter: 2008Q4

REPORT INFORMATION
  Report Type: 
  Country: None (occurrence: None)
  Receive Date: 20081202
  Receipt Date: 20081121
  Transmission Date: 20090506
  Serious: Yes (Other)
  Sender: FDA-Public Use
  Company Number: US-MERCK-0805USA02814

PATIENT
  Sex: Female

DRUGS (2)
  1. FOSAMAX [Suspect]
     Route: 048
     Dates: start: 20021201
  2. FOSAMAX [Suspect]
     Route: 048
     Dates: start: 20030201, end: 20070501

REACTIONS (5)
  - GINGIVAL DISORDER [None]
  - OSTEOMYELITIS [None]
  - OSTEONECROSIS [None]
  - RESORPTION BONE INCREASED [None]
  - TOOTH DISORDER [None]
